FAERS Safety Report 26149117 (Version 1)
Quarter: 2025Q4

REPORT INFORMATION
  Report Type: Spontaneous
  Country: EU (occurrence: EU)
  Receive Date: 20251212
  Receipt Date: 20251212
  Transmission Date: 20260117
  Serious: Yes (Life-Threatening)
  Sender: RANBAXY
  Company Number: EU-URPL-DML-MLP.4401.1.580.2022

PATIENT
  Age: 57 Year
  Sex: Female
  Weight: 90 kg

DRUGS (3)
  1. DULOXETINE [Suspect]
     Active Substance: DULOXETINE
     Indication: Product used for unknown indication
     Dosage: 10 TABLETS
     Route: 065
     Dates: start: 20220203
  2. VALPROIC ACID [Suspect]
     Active Substance: VALPROIC ACID
     Indication: Product used for unknown indication
     Dosage: 10 TABLETS
     Route: 065
     Dates: start: 20220203
  3. AMISULPRIDE [Suspect]
     Active Substance: AMISULPRIDE
     Indication: Product used for unknown indication
     Dosage: 12 TABLETS
     Route: 065
     Dates: start: 20220203

REACTIONS (4)
  - Somnolence [Unknown]
  - Psychomotor skills impaired [Unknown]
  - Balance disorder [Unknown]
  - Depressed mood [Unknown]
